FAERS Safety Report 11216125 (Version 1)
Quarter: 2015Q2

REPORT INFORMATION
  Report Type: Report from Study
  Country: FR (occurrence: FR)
  Receive Date: 20150624
  Receipt Date: 20150624
  Transmission Date: 20150821
  Serious: Yes (Hospitalization, Other)
  Sender: FDA-Public Use
  Company Number: FR-GLAXOSMITHKLINE-FR2015GSK088892

PATIENT

DRUGS (14)
  1. AMLOR [Concomitant]
     Active Substance: AMLODIPINE BESYLATE
  2. VASTAREL [Concomitant]
     Active Substance: TRIMETAZIDINE DIHYDROCHLORIDE
  3. KARDEGIC [Concomitant]
     Active Substance: ASPIRIN LYSINE
  4. DOLIPRANE [Concomitant]
     Active Substance: ACETAMINOPHEN
  5. PLAVIX [Concomitant]
     Active Substance: CLOPIDOGREL BISULFATE
  6. TEMERIT [Concomitant]
     Active Substance: NEBIVOLOL
  7. ADANCOR [Concomitant]
     Active Substance: NICORANDIL
  8. MOPRAL [Concomitant]
     Active Substance: OMEPRAZOLE SODIUM
  9. OMEGA-3-ACID ETHYL ESTERS. [Suspect]
     Active Substance: OMEGA-3-ACID ETHYL ESTERS
     Indication: ISCHAEMIC HEART DISEASE PROPHYLAXIS
     Dosage: UNK
     Dates: start: 20080505, end: 20090629
  10. CORVASAL [Concomitant]
     Active Substance: LINSIDOMINE
  11. TAHOR [Concomitant]
     Active Substance: ATORVASTATIN CALCIUM
  12. NITRIDERM [Concomitant]
     Active Substance: NITROGLYCERIN
  13. LEXOMIL [Concomitant]
     Active Substance: BROMAZEPAM
  14. ZESTRIL [Concomitant]
     Active Substance: LISINOPRIL

REACTIONS (1)
  - Angina pectoris [Unknown]

NARRATIVE: CASE EVENT DATE: 20080528
